FAERS Safety Report 8936674 (Version 2)
Quarter: 2013Q1

REPORT INFORMATION
  Report Type: Report from Study
  Country: US (occurrence: US)
  Receive Date: 20121130
  Receipt Date: 20130128
  Transmission Date: 20140127
  Serious: Yes (Hospitalization)
  Sender: FDA-Public Use
  Company Number: US-009507513-1211USA011965

PATIENT
  Age: 73 Year
  Sex: Female
  Weight: 88.2 kg

DRUGS (1)
  1. TEMOZOLOMIDE [Suspect]
     Indication: GLIOBLASTOMA MULTIFORME
     Dosage: 185 MG, DAILY X21 DAYS, ORAL
     Route: 048
     Dates: start: 20091003, end: 20091017

REACTIONS (1)
  - Convulsion [Recovered/Resolved]
